FAERS Safety Report 14251855 (Version 2)
Quarter: 2018Q4

REPORT INFORMATION
  Report Type: Spontaneous
  Country: US (occurrence: US)
  Receive Date: 20171205
  Receipt Date: 20181012
  Transmission Date: 20190204
  Serious: No
  Sender: FDA-Public Use
  Company Number: US-BIOGEN-2017BI00489673

PATIENT
  Sex: Female

DRUGS (4)
  1. PLEGRIDY [Suspect]
     Active Substance: PEGINTERFERON BETA-1A
     Indication: MULTIPLE SCLEROSIS
     Route: 058
     Dates: start: 2014
  2. PLEGRIDY [Suspect]
     Active Substance: PEGINTERFERON BETA-1A
     Dosage: INJECT 63MCG?SUBCUTANEOUSLY ON?DAY 1, THEN 94MCG 2?WEEKS LATER ON DAY?15
     Route: 058
     Dates: start: 20150310
  3. PLEGRIDY [Suspect]
     Active Substance: PEGINTERFERON BETA-1A
     Dosage: INJECT 63MCG?SUBCUTANEOUSLY ON?DAY 1, 94MCG 2 WEEKS?LATER ON DAY 15, THEN?125MCG EVERY 2 WEEKS
     Route: 058
     Dates: start: 20150224
  4. PLEGRIDY [Suspect]
     Active Substance: PEGINTERFERON BETA-1A
     Dosage: INJECT 125MCG?SUBCUTANEOUSLY?EVERY 14 DAYS
     Route: 058
     Dates: start: 20150324

REACTIONS (2)
  - White blood cell count decreased [Not Recovered/Not Resolved]
  - Influenza like illness [Recovered/Resolved]

NARRATIVE: CASE EVENT DATE: 2014
